FAERS Safety Report 23477105 (Version 1)
Quarter: 2024Q1

REPORT INFORMATION
  Report Type: Spontaneous
  Country: US (occurrence: US)
  Receive Date: 20240204
  Receipt Date: 20240204
  Transmission Date: 20240410
  Serious: No
  Sender: FDA-Public Use
  Company Number: US-EXELIXIS-CABO-23064973

PATIENT
  Age: 43 Year
  Sex: Male

DRUGS (5)
  1. CABOMETYX [Suspect]
     Active Substance: CABOZANTINIB S-MALATE
     Indication: Renal cell carcinoma
     Dosage: 40 MG, QD
     Dates: start: 200201
  2. CABOMETYX [Suspect]
     Active Substance: CABOZANTINIB S-MALATE
     Dosage: UNK
     Dates: start: 20230612
  3. OPDIVO [Suspect]
     Active Substance: NIVOLUMAB
     Indication: Renal cell carcinoma
     Dosage: UNK, ONCE A MONTH
     Dates: start: 200201
  4. XARELTO [Concomitant]
     Active Substance: RIVAROXABAN
  5. ACYCLOVIR [Concomitant]
     Active Substance: ACYCLOVIR

REACTIONS (5)
  - Perineal disorder [Unknown]
  - Discomfort [Not Recovered/Not Resolved]
  - Pain [Not Recovered/Not Resolved]
  - Pruritus [Not Recovered/Not Resolved]
  - Sleep disorder [Not Recovered/Not Resolved]

NARRATIVE: CASE EVENT DATE: 20230601
